FAERS Safety Report 9136992 (Version 1)
Quarter: 2013Q1

REPORT INFORMATION
  Report Type: Spontaneous
  Country: US (occurrence: US)
  Receive Date: 20130304
  Receipt Date: 20130304
  Transmission Date: 20140127
  Serious: Yes (Hospitalization)
  Sender: FDA-Public Use
  Company Number: US-TEVA-357882USA

PATIENT
  Age: 53 Year
  Sex: Female

DRUGS (1)
  1. TREANDA [Suspect]
     Dosage: 170 MG CYCLIC
     Route: 042
     Dates: start: 20120709

REACTIONS (2)
  - Asthenia [Not Recovered/Not Resolved]
  - Cough [Not Recovered/Not Resolved]
